FAERS Safety Report 8830763 (Version 1)
Quarter: 2012Q4

REPORT INFORMATION
  Report Type: 
  Country: US (occurrence: US)
  Receive Date: 20121009
  Receipt Date: 20121009
  Transmission Date: 20130627
  Serious: Yes (Other)
  Sender: FDA-Public Use
  Company Number: US-PFIZER INC-2012246082

PATIENT
  Age: 48 Year
  Sex: Male

DRUGS (7)
  1. VISTARIL [Suspect]
     Dosage: 25 mg, every 4 hours as needed
     Route: 048
  2. HYDROXYZINE [Concomitant]
  3. FUROSEMIDE [Concomitant]
  4. NITROGLYCERIN [Concomitant]
  5. PROVENTIL [Concomitant]
  6. TOPROL [Concomitant]
  7. LISINOPRIL W/HYDROCHLOROTHIAZIDE [Concomitant]

REACTIONS (3)
  - Pneumonia [Unknown]
  - Nodule [Unknown]
  - Heat exhaustion [Unknown]
